FAERS Safety Report 12343354 (Version 3)
Quarter: 2016Q3

REPORT INFORMATION
  Report Type: Spontaneous
  Country: US (occurrence: US)
  Receive Date: 20160506
  Receipt Date: 20160901
  Transmission Date: 20161109
  Serious: Yes (Hospitalization)
  Sender: FDA-Public Use
  Company Number: US-RELYPSA-RLY2016000487

PATIENT
  Age: 88 Year
  Sex: Male

DRUGS (19)
  1. LIPITOR [Concomitant]
     Active Substance: ATORVASTATIN CALCIUM
  2. VITAMIN B12 [Concomitant]
     Active Substance: CYANOCOBALAMIN
  3. PROBIOTIC                          /06395501/ [Concomitant]
     Active Substance: BIFIDOBACTERIUM ANIMALIS SUBSP. LACTIS
  4. CENTRUM SILVER                     /02363801/ [Concomitant]
     Active Substance: MINERALS\VITAMINS
  5. CALCIUM ACETATE. [Concomitant]
     Active Substance: CALCIUM ACETATE
  6. STOOL SOFTENER [Concomitant]
     Active Substance: DOCUSATE CALCIUM
  7. SODIUM BICARBONATE. [Concomitant]
     Active Substance: SODIUM BICARBONATE
  8. ISOSORBIDE MONONITRATE. [Concomitant]
     Active Substance: ISOSORBIDE MONONITRATE
  9. DONEPEZIL. [Concomitant]
     Active Substance: DONEPEZIL
  10. CILOSTAZOL. [Concomitant]
     Active Substance: CILOSTAZOL
  11. AMLODIPINE BESYLATE. [Concomitant]
     Active Substance: AMLODIPINE BESYLATE
  12. VITAMIN D                          /00107901/ [Concomitant]
     Active Substance: ERGOCALCIFEROL
  13. LISINOPRIL. [Concomitant]
     Active Substance: LISINOPRIL
  14. LANTUS [Concomitant]
     Active Substance: INSULIN GLARGINE
  15. VELTASSA [Suspect]
     Active Substance: PATIROMER
     Indication: HYPERKALAEMIA
     Dosage: 8.4 G, QD
     Route: 048
     Dates: start: 20160209
  16. TORSEMIDE. [Concomitant]
     Active Substance: TORSEMIDE
  17. IRON [Concomitant]
     Active Substance: IRON
  18. NOVOLOG [Concomitant]
     Active Substance: INSULIN ASPART
  19. COREG [Concomitant]
     Active Substance: CARVEDILOL

REACTIONS (1)
  - Hospitalisation [Recovered/Resolved]

NARRATIVE: CASE EVENT DATE: 201604
